FAERS Safety Report 14707926 (Version 5)
Quarter: 2020Q1

REPORT INFORMATION
  Report Type: Spontaneous
  Country: US (occurrence: US)
  Receive Date: 20180403
  Receipt Date: 20200312
  Transmission Date: 20200409
  Serious: No
  Sender: FDA-Public Use
  Company Number: US-PFIZER INC-2018133832

PATIENT
  Age: 47 Year
  Sex: Female

DRUGS (1)
  1. NORPACE CR [Suspect]
     Active Substance: DISOPYRAMIDE PHOSPHATE
     Dosage: 300 MG, 2X/DAY
     Route: 048

REACTIONS (4)
  - Vision blurred [Unknown]
  - Drug ineffective [Unknown]
  - Stress [Unknown]
  - Malaise [Unknown]
